FAERS Safety Report 9330103 (Version 2)
Quarter: 2013Q4

REPORT INFORMATION
  Report Type: Spontaneous
  Country: US (occurrence: US)
  Receive Date: 20130604
  Receipt Date: 20131015
  Transmission Date: 20140711
  Serious: Yes (Death, Hospitalization)
  Sender: FDA-Public Use
  Company Number: US-B.I. PHARMACEUTICALS,INC./RIDGEFIELD-2013-BI-15465BP

PATIENT
  Age: 78 Year
  Sex: Male
  Weight: 104.33 kg

DRUGS (12)
  1. PRADAXA [Suspect]
     Indication: ATRIAL FIBRILLATION
     Dosage: 300 MG
     Route: 048
     Dates: start: 20110706, end: 20120123
  2. MULTIVITAMINS [Concomitant]
  3. NOVOLIN INSULIN [Concomitant]
  4. DIOVAN [Concomitant]
     Dosage: 40 MG
  5. TRICOR [Concomitant]
  6. PROTONIX [Concomitant]
  7. MAGNESIUM [Concomitant]
  8. VITAMIN B12 [Concomitant]
  9. NAMENDA [Concomitant]
  10. REQUIP [Concomitant]
     Dosage: 4 MG
     Route: 048
  11. ATACAND [Concomitant]
  12. PLAVIX [Concomitant]
     Dosage: 75 MG
     Route: 048

REACTIONS (4)
  - Cardiac arrest [Fatal]
  - Intracardiac thrombus [Fatal]
  - Haemorrhagic cerebral infarction [Unknown]
  - Haematuria [Unknown]
